FAERS Safety Report 4609559-2 (Version None)
Quarter: 2005Q1

REPORT INFORMATION
  Report Type: 
  Country: None (occurrence: None)
  Receive Date: 20050314
  Receipt Date: 20050314
  Transmission Date: 20050727
  Serious: Yes (Hospitalization)
  Sender: FDA-Public Use
  Company Number: None

PATIENT
  Sex: Female

DRUGS (1)
  1. VICODIN [Suspect]
     Indication: BACK PAIN
     Dosage: TID  PRN PO
     Route: 048
     Dates: start: 20040822

REACTIONS (2)
  - PHARMACEUTICAL PRODUCT COMPLAINT [None]
  - SYNCOPE [None]
